FAERS Safety Report 21733234 (Version 1)
Quarter: 2022Q4

REPORT INFORMATION
  Report Type: Report from Study
  Country: BR (occurrence: None)
  Receive Date: 20221215
  Receipt Date: 20221215
  Transmission Date: 20230113
  Serious: Yes (Other)
  Sender: FDA-Public Use
  Company Number: BR-Merck Healthcare KGaA-9372697

PATIENT
  Sex: Female

DRUGS (4)
  1. MAVENCLAD [Suspect]
     Active Substance: CLADRIBINE
     Indication: Multiple sclerosis
     Dosage: YEAR 1 MONTH 1: 2 TABLETS OF DAY 1 AND THE OTHER INTAKES FROM DAY 2 TO DAY 4 OF 1 TABLET PER DAY
     Route: 048
     Dates: start: 20211206
  2. MAVENCLAD [Suspect]
     Active Substance: CLADRIBINE
     Dosage: YEAR 1 MONTH 2 THERAPY: 2 TABLETS ON DAY 1 AND FROM DAY 2 TO DAY 4 OF 1 TABLET PER DAY
     Route: 048
     Dates: start: 20220104, end: 20220107
  3. VITAMIN B12 [Concomitant]
     Active Substance: CYANOCOBALAMIN
     Indication: Vitamin supplementation
     Dosage: SHE HAD 3 MORE ADMINISTRATIONS TO PERFORM.
  4. ERGOCALCIFEROL [Concomitant]
     Active Substance: ERGOCALCIFEROL
     Indication: Product used for unknown indication

REACTIONS (1)
  - Leiomyoma [Not Recovered/Not Resolved]
